FAERS Safety Report 7283920-2 (Version None)
Quarter: 2011Q1

REPORT INFORMATION
  Report Type: 
  Country: None (occurrence: None)
  Receive Date: 20110209
  Receipt Date: 20110128
  Transmission Date: 20110831
  Serious: Yes (Hospitalization)
  Sender: FDA-Public Use
  Company Number: PHHY2011IT07460

PATIENT
  Sex: Female

DRUGS (5)
  1. DEXAMETASON [Concomitant]
     Dosage: 12 MG
     Route: 042
  2. OXALIPLATIN SANDOZ [Suspect]
     Indication: RECTAL CANCER
     Dosage: 190 MG CYCLIC DOSAGE
     Route: 042
  3. CHLORPHENAMINE [Concomitant]
     Route: 030
  4. OMEPRAZOLE [Concomitant]
     Dosage: UNK
     Route: 048
  5. ONDANSETRON [Concomitant]
     Route: 042

REACTIONS (3)
  - SPEECH DISORDER [None]
  - HYPERTENSIVE CRISIS [None]
  - MOVEMENT DISORDER [None]
